FAERS Safety Report 4882380-6 (Version None)
Quarter: 2005Q4

REPORT INFORMATION
  Report Type: 
  Country: None (occurrence: None)
  Receive Date: 20051201
  Receipt Date: 20050726
  Transmission Date: 20060501
  Serious: No
  Sender: FDA-Public Use
  Company Number: 2005PV000610

PATIENT
  Age: 59 Year
  Sex: Female
  Weight: 91.6266 kg

DRUGS (6)
  1. BYETTA [Suspect]
     Indication: DIABETES MELLITUS NON-INSULIN-DEPENDENT
     Dosage: 5 MCG;BID;SC
     Route: 058
     Dates: start: 20050701
  2. HUMULIN 70/30 [Concomitant]
  3. INDERAL [Concomitant]
  4. HYDRODIURIL [Concomitant]
  5. K-DUR 10 [Concomitant]
  6. ASPIRIN [Concomitant]

REACTIONS (6)
  - ABDOMINAL PAIN UPPER [None]
  - DECREASED APPETITE [None]
  - DIARRHOEA [None]
  - GASTROINTESTINAL PAIN [None]
  - NAUSEA [None]
  - WEIGHT DECREASED [None]
